FAERS Safety Report 4821046-5 (Version None)
Quarter: 2005Q4

REPORT INFORMATION
  Report Type: 
  Country: None (occurrence: None)
  Receive Date: 20051104
  Receipt Date: 20051021
  Transmission Date: 20060501
  Serious: Yes (Other)
  Sender: FDA-Public Use
  Company Number: GBWYE079321OCT05

PATIENT
  Sex: Female
  Weight: 57 kg

DRUGS (4)
  1. ENBREL [Suspect]
     Indication: RHEUMATOID ARTHRITIS
     Route: 058
     Dates: start: 19980101
  2. ETODOLAC [Concomitant]
     Dosage: 600 MG, FREQUENCY UNKNOWN
     Route: 048
  3. TRAMADOL [Concomitant]
     Dosage: 500 MG AS REQUIRED
     Route: 048
  4. ACETAMINOPHEN [Concomitant]
     Dosage: UNKNOWN
     Route: 048

REACTIONS (4)
  - HAEMOGLOBIN DECREASED [None]
  - HYPERGAMMAGLOBULINAEMIA BENIGN MONOCLONAL [None]
  - MONOCLONAL IMMUNOGLOBULIN PRESENT [None]
  - PLASMACYTOMA [None]
